FAERS Safety Report 6232719-4 (Version None)
Quarter: 2009Q2

REPORT INFORMATION
  Report Type: 
  Country: None (occurrence: None)
  Receive Date: 20090612
  Receipt Date: 20090612
  Transmission Date: 20091009
  Serious: Yes (Other)
  Sender: FDA-Public Use
  Company Number: None

PATIENT
  Sex: Female
  Weight: 84.369 kg

DRUGS (2)
  1. GLEEVEC [Suspect]
     Indication: ENDOMETRIAL CANCER
     Dosage: 400MG ONCE A DAY PO
     Route: 048
     Dates: start: 20090529, end: 20090530
  2. GLEEVEC [Suspect]
     Indication: ENDOMETRIAL CANCER
     Dosage: 400MG ONCE A DAY PO
     Route: 048
     Dates: start: 20090605, end: 20090606

REACTIONS (9)
  - ABNORMAL DREAMS [None]
  - ASTHENIA [None]
  - BONE PAIN [None]
  - DYSPNOEA [None]
  - FEELING ABNORMAL [None]
  - JOINT SWELLING [None]
  - NAUSEA [None]
  - OEDEMA PERIPHERAL [None]
  - VOMITING [None]
